FAERS Safety Report 13746927 (Version 1)
Quarter: 2017Q3

REPORT INFORMATION
  Report Type: Spontaneous
  Country: US (occurrence: US)
  Receive Date: 20170712
  Receipt Date: 20170712
  Transmission Date: 20171127
  Serious: Yes (Other)
  Sender: FDA-Public Use
  Company Number: US-GLAXOSMITHKLINE-US2017106126

PATIENT
  Age: 16 Year
  Sex: Male

DRUGS (11)
  1. MIDAZOLAM [Concomitant]
     Active Substance: MIDAZOLAM HYDROCHLORIDE
     Dosage: 25 MG/KG, UNK
  2. EPINEPHRINE. [Concomitant]
     Active Substance: EPINEPHRINE
     Dosage: 0.27 MG/KG, UNK
  3. METHYLPREDNISOLONE. [Concomitant]
     Active Substance: METHYLPREDNISOLONE
     Dosage: 40 MG, UNK
     Route: 042
  4. MAGNESIUM [Concomitant]
     Active Substance: MAGNESIUM
     Dosage: 25 MG/KG, UNK
  5. AMINOPHYLLINE. [Concomitant]
     Active Substance: AMINOPHYLLINE
     Dosage: BOLUS
  6. KETAMINE [Concomitant]
     Active Substance: KETAMINE
     Dosage: 2 MG/KG, UNK
  7. EPINEPHRINE. [Concomitant]
     Active Substance: EPINEPHRINE
     Dosage: 0.2 MG/KG, UNK
  8. SEVOFLURANE. [Concomitant]
     Active Substance: SEVOFLURANE
     Dosage: WITH A FRESH GAS FLOW RATE OF 2 L/MIN
     Route: 045
  9. SALBUTAMOL [Suspect]
     Active Substance: ALBUTEROL
     Indication: PRODUCT USED FOR UNKNOWN INDICATION
     Dosage: CONTINUOUS INHALED
     Route: 045
  10. MAGNESIUM [Concomitant]
     Active Substance: MAGNESIUM
     Dosage: 15 MG/KG, UNK
  11. AMINOPHYLLINE. [Concomitant]
     Active Substance: AMINOPHYLLINE
     Dosage: 0.5 MG/KG, UNK
     Route: 065

REACTIONS (2)
  - Hypercapnia [Recovered/Resolved]
  - Device failure [Recovered/Resolved]
